FAERS Safety Report 7818483-3 (Version None)
Quarter: 2011Q4

REPORT INFORMATION
  Report Type: 
  Country: None (occurrence: None)
  Receive Date: 20111017
  Receipt Date: 20111011
  Transmission Date: 20120403
  Serious: Yes (Hospitalization)
  Sender: FDA-Public Use
  Company Number: JP-B.I. PHARMACEUTICALS,INC./RIDGEFIELD-2011-BP-23247NB

PATIENT
  Sex: Female

DRUGS (10)
  1. CRESTOR [Concomitant]
     Indication: HYPERCHOLESTEROLAEMIA
     Dosage: 2.5 MG
     Route: 048
     Dates: start: 20090417
  2. WARFARIN SODIUM [Concomitant]
     Dosage: 2.5 MG
     Route: 048
     Dates: start: 20090331, end: 20110427
  3. ALLOPURINOL [Concomitant]
     Dosage: 100 MG
     Route: 048
     Dates: start: 20110722
  4. LANIRAPID [Concomitant]
     Indication: PALPITATIONS
     Dosage: 0.05 MG
     Route: 048
     Dates: start: 20110921
  5. SUNRYTHM [Concomitant]
     Indication: ARRHYTHMIA PROPHYLAXIS
     Dosage: 100 MG
     Route: 048
     Dates: start: 20100830
  6. THEO-DUR [Concomitant]
     Indication: CHRONIC OBSTRUCTIVE PULMONARY DISEASE
     Dosage: 400 MG
     Route: 048
  7. SPIRIVA [Concomitant]
     Indication: CHRONIC OBSTRUCTIVE PULMONARY DISEASE
     Route: 055
  8. ONEALFA [Concomitant]
     Dosage: 0.5 MCG
     Route: 048
     Dates: start: 20110610
  9. PRADAXA [Suspect]
     Indication: EMBOLIC STROKE
     Dosage: 220 MG
     Route: 048
     Dates: start: 20110428
  10. LANSOPRAZOLE [Concomitant]
     Dosage: 15 MG
     Route: 048
     Dates: start: 20090417

REACTIONS (1)
  - EMBOLIC CEREBRAL INFARCTION [None]
